FAERS Safety Report 5240473-8 (Version None)
Quarter: 2007Q1

REPORT INFORMATION
  Report Type: 
  Country: None (occurrence: None)
  Receive Date: 20070219
  Receipt Date: 20070209
  Transmission Date: 20070707
  Serious: Yes (Other)
  Sender: FDA-Public Use
  Company Number: IT-GLAXOSMITHKLINE-B0458474A

PATIENT
  Age: 32 Year
  Sex: Female

DRUGS (1)
  1. NIQUITIN CQ 2MG LOZENGE [Suspect]
     Dosage: 2MG PER DAY
     Route: 002
     Dates: start: 20070131, end: 20070131

REACTIONS (2)
  - BRONCHOSPASM [None]
  - LARYNGEAL OEDEMA [None]
